FAERS Safety Report 4771756-3 (Version None)
Quarter: 2005Q3

REPORT INFORMATION
  Report Type: 
  Country: None (occurrence: None)
  Receive Date: 20050916
  Receipt Date: 20050826
  Transmission Date: 20060218
  Serious: Yes (Hospitalization, Disabling)
  Sender: FDA-Public Use
  Company Number: NO-MERCK-0508NOR00026

PATIENT
  Age: 74 Year
  Sex: Female

DRUGS (9)
  1. VIOXX [Suspect]
     Indication: OSTEOARTHRITIS
     Route: 048
     Dates: start: 20001001, end: 20020101
  2. VIOXX [Suspect]
     Route: 048
     Dates: start: 20021001, end: 20031201
  3. VIOXX [Suspect]
     Indication: ARTHRALGIA
     Route: 048
     Dates: start: 20001001, end: 20020101
  4. VIOXX [Suspect]
     Route: 048
     Dates: start: 20021001, end: 20031201
  5. GABAPENTIN [Concomitant]
     Route: 065
  6. CETIRIZINE HYDROCHLORIDE [Concomitant]
     Indication: HYPERSENSITIVITY
     Route: 048
  7. OXAZEPAM [Concomitant]
     Route: 048
  8. HYDROCHLOROTHIAZIDE [Concomitant]
     Route: 065
     Dates: end: 20031201
  9. LACTULOSE [Concomitant]
     Route: 065

REACTIONS (4)
  - CEREBROVASCULAR ACCIDENT [None]
  - DYSPEPSIA [None]
  - HYPERTENSION [None]
  - PNEUMONIA [None]
